FAERS Safety Report 23038079 (Version 1)
Quarter: 2023Q4

REPORT INFORMATION
  Report Type: Spontaneous
  Country: US (occurrence: None)
  Receive Date: 20231005
  Receipt Date: 20231005
  Transmission Date: 20240110
  Serious: Yes (Life-Threatening, Disabling)
  Sender: FDA-Public Use
  Company Number: None

PATIENT
  Age: 58 Year
  Sex: Female
  Weight: 57.6 kg

DRUGS (1)
  1. OZEMPIC [Suspect]
     Active Substance: SEMAGLUTIDE
     Indication: Type 1 diabetes mellitus
     Dosage: OTHER FREQUENCY : ONCE PER WEEK;?
     Route: 058
     Dates: start: 20230623, end: 20230728

REACTIONS (11)
  - Nausea [None]
  - Pyrexia [None]
  - Abdominal pain [None]
  - Vomiting [None]
  - Illness [None]
  - Middle insomnia [None]
  - Discomfort [None]
  - Back pain [None]
  - Anal incontinence [None]
  - Colitis microscopic [None]
  - Bile acid malabsorption [None]

NARRATIVE: CASE EVENT DATE: 20230730
